FAERS Safety Report 25469960 (Version 1)
Quarter: 2025Q2

REPORT INFORMATION
  Report Type: Spontaneous
  Country: US (occurrence: US)
  Receive Date: 20250623
  Receipt Date: 20250623
  Transmission Date: 20250717
  Serious: No
  Sender: KRAMER LABORATORIES
  Company Number: US-KRAMERLABS-2024-US-047654

PATIENT
  Sex: Female

DRUGS (1)
  1. NIZORAL [Suspect]
     Active Substance: KETOCONAZOLE
     Indication: Product use in unapproved indication
     Route: 061

REACTIONS (3)
  - Product use in unapproved indication [Unknown]
  - Application site irritation [Unknown]
  - Suspected counterfeit product [Unknown]
